FAERS Safety Report 9268886 (Version 2)
Quarter: 2013Q2

REPORT INFORMATION
  Report Type: Spontaneous
  Country: JP (occurrence: JP)
  Receive Date: 20130503
  Receipt Date: 20130508
  Transmission Date: 20140414
  Serious: No
  Sender: FDA-Public Use
  Company Number: JP-ABBOTT-13A-087-1074920-00

PATIENT
  Age: 31 Year
  Sex: Female
  Weight: 46.1 kg

DRUGS (6)
  1. KLARICID [Suspect]
     Indication: PNEUMONIA
     Route: 048
     Dates: start: 20100927, end: 20101004
  2. PIPERACILLIN/TAZOBACTAM [Concomitant]
     Indication: PNEUMONIA
     Route: 041
     Dates: start: 20100927, end: 20101001
  3. RITODRINE HYDROCHLORIDE [Concomitant]
     Indication: THREATENED LABOUR
     Route: 048
     Dates: start: 20100906, end: 20100920
  4. RITODRINE HYDROCHLORIDE [Concomitant]
     Dosage: DOSE CHANGED AS NECESSARY
     Route: 041
     Dates: start: 20100916, end: 20101007
  5. CEFTRIAXONE [Concomitant]
     Indication: PNEUMONIA
     Route: 041
     Dates: start: 20100915, end: 20100921
  6. RISPERIDONE [Concomitant]
     Indication: SCHIZOPHRENIA
     Route: 048
     Dates: end: 20101125

REACTIONS (2)
  - Mental disorder [Recovering/Resolving]
  - Restlessness [Recovering/Resolving]
